FAERS Safety Report 21392528 (Version 4)
Quarter: 2022Q4

REPORT INFORMATION
  Report Type: Spontaneous
  Country: US (occurrence: US)
  Receive Date: 20220929
  Receipt Date: 20221215
  Transmission Date: 20230113
  Serious: No
  Sender: FDA-Public Use
  Company Number: US-Calliditas-2022CAL00347

PATIENT
  Age: 40 Year
  Sex: Female
  Weight: 59 kg

DRUGS (5)
  1. TARPEYO [Suspect]
     Active Substance: BUDESONIDE
     Indication: IgA nephropathy
     Dosage: 16 MG (4 MG CAPSULES) DAILY
     Route: 048
     Dates: start: 202206
  2. CELECOXIB [Concomitant]
     Active Substance: CELECOXIB
  3. SYNTHROID [Concomitant]
     Active Substance: LEVOTHYROXINE SODIUM
  4. LISINOPRIL [Concomitant]
     Active Substance: LISINOPRIL
  5. LIPITOR [Concomitant]
     Active Substance: ATORVASTATIN CALCIUM

REACTIONS (6)
  - Pollakiuria [Recovered/Resolved]
  - Agitation [Recovered/Resolved]
  - Drug ineffective [Unknown]
  - Prescribed underdose [Not Recovered/Not Resolved]
  - Feeling abnormal [Recovered/Resolved]
  - Anger [Recovered/Resolved]

NARRATIVE: CASE EVENT DATE: 20220601
